APPROVED DRUG PRODUCT: DOXORUBICIN HYDROCHLORIDE
Active Ingredient: DOXORUBICIN HYDROCHLORIDE
Strength: 200MG/100ML
Dosage Form/Route: INJECTABLE;INJECTION
Application: A064097 | Product #001 | TE Code: AP
Applicant: HIKMA PHARMACEUTICALS USA INC
Approved: Sep 13, 1994 | RLD: No | RS: No | Type: RX